FAERS Safety Report 21456328 (Version 2)
Quarter: 2023Q1

REPORT INFORMATION
  Report Type: Spontaneous
  Country: US (occurrence: US)
  Receive Date: 20221014
  Receipt Date: 20230227
  Transmission Date: 20230417
  Serious: Yes (Other)
  Sender: FDA-Public Use
  Company Number: US-BRISTOL-MYERS SQUIBB COMPANY-2022-119066

PATIENT
  Age: 72 Year
  Sex: Female

DRUGS (1)
  1. THALOMID [Suspect]
     Active Substance: THALIDOMIDE
     Indication: Arteriovenous malformation
     Dosage: ONCE DAILY
     Dates: start: 20220624

REACTIONS (6)
  - Fatigue [Unknown]
  - Cystocele [Unknown]
  - Oral discomfort [Unknown]
  - Nausea [Unknown]
  - Pain [Unknown]
  - Off label use [Unknown]
